FAERS Safety Report 7487550-9 (Version None)
Quarter: 2011Q2

REPORT INFORMATION
  Report Type: 
  Country: None (occurrence: None)
  Receive Date: 20110518
  Receipt Date: 20110513
  Transmission Date: 20111010
  Serious: Yes (Other)
  Sender: FDA-Public Use
  Company Number: US-BRISTOL-MYERS SQUIBB COMPANY-15745359

PATIENT
  Sex: Male

DRUGS (2)
  1. ORENCIA [Suspect]
     Dosage: NO OF TREATMENT:2
  2. METHOTREXATE [Concomitant]

REACTIONS (1)
  - THROMBOCYTOPENIA [None]
